FAERS Safety Report 15867406 (Version 1)
Quarter: 2019Q1

REPORT INFORMATION
  Report Type: Spontaneous
  Country: FR (occurrence: FR)
  Receive Date: 20190125
  Receipt Date: 20190125
  Transmission Date: 20190417
  Serious: Yes (Other)
  Sender: FDA-Public Use
  Company Number: FR-EMD SERONO-E2B_90065816

PATIENT
  Age: 31 Year
  Sex: Female
  Weight: 48 kg

DRUGS (3)
  1. OVITRELLE [Suspect]
     Active Substance: CHORIOGONADOTROPIN ALFA
     Indication: ASSISTED FERTILISATION
     Dosage: 1 INJECTION
     Route: 058
     Dates: start: 20180716, end: 20180716
  2. CLOMID [Suspect]
     Active Substance: CLOMIPHENE CITRATE
     Indication: ASSISTED FERTILISATION
     Route: 048
     Dates: start: 201806, end: 20180716
  3. MENOPUR [Suspect]
     Active Substance: FOLLITROPIN\LUTEINIZING HORMONE
     Indication: ASSISTED FERTILISATION
     Route: 058
     Dates: start: 201807, end: 20180716

REACTIONS (4)
  - Peritoneal haemorrhage [Recovered/Resolved]
  - Haemorrhagic ovarian cyst [Recovered/Resolved]
  - Ovarian necrosis [Recovered/Resolved]
  - Adnexal torsion [Recovered/Resolved]

NARRATIVE: CASE EVENT DATE: 20180718
